FAERS Safety Report 5744088-4 (Version None)
Quarter: 2008Q2

REPORT INFORMATION
  Report Type: 
  Country: None (occurrence: None)
  Receive Date: 20080516
  Receipt Date: 20080516
  Transmission Date: 20081010
  Serious: Yes (Hospitalization)
  Sender: FDA-Public Use
  Company Number: None

PATIENT
  Sex: Male
  Weight: 77.2 kg

DRUGS (1)
  1. DAUNORUBICIN HCL [Suspect]
     Dosage: 342 MG
     Dates: end: 20080417

REACTIONS (1)
  - SEPSIS [None]
